FAERS Safety Report 6078396-7 (Version None)
Quarter: 2009Q1

REPORT INFORMATION
  Report Type: 
  Country: None (occurrence: None)
  Receive Date: 20090212
  Receipt Date: 20090205
  Transmission Date: 20090719
  Serious: Yes (Other)
  Sender: FDA-Public Use
  Company Number: 2009SP000893

PATIENT
  Age: 57 Year
  Sex: Male

DRUGS (6)
  1. PEG-INTRON [Suspect]
     Indication: DRUG USE FOR UNKNOWN INDICATION
     Dosage: 120 MCG; QW;
     Dates: start: 20081020
  2. RIBAVIRIN [Suspect]
     Indication: DRUG USE FOR UNKNOWN INDICATION
     Dosage: 600 MG; BID; PO
     Route: 048
     Dates: start: 20081020
  3. ZANAFLEX [Concomitant]
  4. NEURONTIN [Concomitant]
  5. MS CONTIN [Concomitant]
  6. EFFEXOR XR [Concomitant]

REACTIONS (1)
  - PROSTATE CANCER [None]
